FAERS Safety Report 11189505 (Version 2)
Quarter: 2015Q2

REPORT INFORMATION
  Report Type: Spontaneous
  Country: US (occurrence: US)
  Receive Date: 20150615
  Receipt Date: 20150624
  Transmission Date: 20150821
  Serious: Yes (Death, Hospitalization, Other)
  Sender: FDA-Public Use
  Company Number: US-AMGEN-USASP2015057301

PATIENT
  Age: 89 Year
  Sex: Female

DRUGS (1)
  1. PROLIA [Suspect]
     Active Substance: DENOSUMAB
     Indication: OSTEOPOROSIS POSTMENOPAUSAL
     Dosage: 60 MG, Q6MO
     Route: 058
     Dates: start: 20120807

REACTIONS (7)
  - Chronic obstructive pulmonary disease [Unknown]
  - Chronic kidney disease [Unknown]
  - Ischaemic cardiomyopathy [Unknown]
  - Cardiac arrest [Fatal]
  - Coronary artery disease [Fatal]
  - Cardiac failure congestive [Unknown]
  - Atrial fibrillation [Unknown]
